FAERS Safety Report 12980252 (Version 1)
Quarter: 2016Q4

REPORT INFORMATION
  Report Type: Spontaneous
  Country: FR (occurrence: FR)
  Receive Date: 20161128
  Receipt Date: 20161128
  Transmission Date: 20170207
  Serious: Yes (Disabling)
  Sender: FDA-Public Use
  Company Number: FR-SA-2016SA212792

PATIENT
  Age: 92 Year
  Sex: Female

DRUGS (3)
  1. KARDEGIC [Suspect]
     Active Substance: ASPIRIN LYSINE
     Route: 048
     Dates: start: 201103, end: 20151025
  2. ASPEGIC [Suspect]
     Active Substance: ASPIRIN DL-LYSINE
     Indication: ISCHAEMIC STROKE
     Route: 042
     Dates: start: 20151026, end: 20151102
  3. LOVENOX [Suspect]
     Active Substance: ENOXAPARIN SODIUM
     Indication: ISCHAEMIC STROKE
     Route: 058
     Dates: start: 20151028, end: 20151102

REACTIONS (1)
  - Haemorrhagic transformation stroke [Recovered/Resolved with Sequelae]

NARRATIVE: CASE EVENT DATE: 20151102
